FAERS Safety Report 7546351-3 (Version None)
Quarter: 2011Q2

REPORT INFORMATION
  Report Type: 
  Country: None (occurrence: None)
  Receive Date: 20110614
  Receipt Date: 20110103
  Transmission Date: 20111010
  Serious: Yes (Hospitalization, Other)
  Sender: FDA-Public Use
  Company Number: US-BAYER-201031724NA

PATIENT
  Age: 31 Year
  Sex: Female
  Weight: 72.727 kg

DRUGS (15)
  1. YAZ [Suspect]
  2. INDERAL LA [Concomitant]
     Indication: MIGRAINE
     Dates: start: 20050101
  3. METFORMIN HCL [Concomitant]
     Indication: MULTIPLE SYSTEM ATROPHY
     Dates: start: 20050101
  4. YASMIN [Suspect]
     Indication: PREMENSTRUAL SYNDROME
     Route: 048
     Dates: start: 20040101, end: 20080101
  5. YASMIN [Suspect]
  6. YAZ [Suspect]
     Indication: PREMENSTRUAL SYNDROME
     Route: 048
     Dates: start: 20040101, end: 20080101
  7. CELEXA [Concomitant]
     Indication: HYPERTENSION
  8. PERCOCET [Concomitant]
  9. INDERAL LA [Concomitant]
     Indication: HYPERTENSION
  10. GLUCOPHAGE [Concomitant]
  11. MOTRIN [Concomitant]
     Indication: PAIN
  12. NAPROXEN [Concomitant]
  13. CELEXA [Concomitant]
     Indication: ANXIETY
     Dates: start: 20060101
  14. IBUPROFEN [Concomitant]
     Dates: start: 20050101, end: 20080101
  15. OVCON-50 [Concomitant]
     Indication: ORAL CONTRACEPTION
     Dosage: UNK
     Dates: start: 20050504, end: 20070701

REACTIONS (6)
  - PAIN [None]
  - RENAL INJURY [None]
  - CHOLECYSTECTOMY [None]
  - CHOLELITHIASIS [None]
  - CHOLECYSTITIS CHRONIC [None]
  - GALLBLADDER CHOLESTEROLOSIS [None]
